FAERS Safety Report 21997913 (Version 1)
Quarter: 2023Q1

REPORT INFORMATION
  Report Type: Spontaneous
  Country: US (occurrence: None)
  Receive Date: 20230216
  Receipt Date: 20230216
  Transmission Date: 20230418
  Serious: No
  Sender: FDA-Public Use
  Company Number: 2023A027133

PATIENT

DRUGS (1)
  1. FARXIGA [Suspect]
     Active Substance: DAPAGLIFLOZIN PROPANEDIOL
     Indication: Chronic kidney disease-mineral and bone disorder
     Dosage: 10.0MG AS REQUIRED
     Route: 048

REACTIONS (2)
  - Glomerular filtration rate decreased [Unknown]
  - Blood creatine increased [Unknown]
